FAERS Safety Report 10038928 (Version 2)
Quarter: 2014Q2

REPORT INFORMATION
  Report Type: Spontaneous
  Country: US (occurrence: US)
  Receive Date: 20140326
  Receipt Date: 20140401
  Transmission Date: 20141212
  Serious: Yes (Disabling, Other)
  Sender: FDA-Public Use
  Company Number: US-009507513-1403USA011587

PATIENT
  Sex: Female

DRUGS (10)
  1. SINGULAIR [Suspect]
     Indication: ALLERGIC SINUSITIS
     Dosage: 10 MG, DAILY
     Route: 048
  2. NASONEX [Suspect]
     Indication: ALLERGIC SINUSITIS
     Dosage: 50MCG 1 PUFF IN EACH NOSTRIL DAILY
     Route: 045
  3. CLARITIN [Suspect]
     Indication: ALLERGIC SINUSITIS
     Dosage: UNK
     Route: 048
  4. TOPAMAX [Suspect]
     Indication: MIGRAINE PROPHYLAXIS
     Dosage: 100 MG TWO TIMES A DAY
     Route: 048
  5. IMITREX (SUMATRIPTAN SUCCINATE) [Suspect]
     Indication: MIGRAINE
     Dosage: 100 MG AS NEEDED
     Route: 048
  6. ZYRTEC [Suspect]
     Indication: ALLERGIC SINUSITIS
     Dosage: 10 MG, DAILY
     Route: 048
  7. ADVAIR DISKUS [Suspect]
     Indication: ALLERGIC SINUSITIS
     Dosage: 500/50MCG ONCE IN THE MORNING AND ONCE IN THE NIGHT, TWICE A DAY
     Route: 055
  8. ADVAIR DISKUS [Suspect]
     Indication: ASTHMA
  9. NEUROTONIN [Suspect]
     Indication: NERVOUSNESS
     Dosage: 300 MG, TWICE A DAY
     Route: 048
  10. VENTOLIN HFA [Concomitant]
     Indication: ASTHMA
     Dosage: UNK, AS NEEDED
     Dates: start: 1999

REACTIONS (10)
  - Mobility decreased [Unknown]
  - Memory impairment [Unknown]
  - Intervertebral disc protrusion [Unknown]
  - Nervousness [Unknown]
  - Crying [Unknown]
  - Headache [Unknown]
  - Stress [Unknown]
  - Hypoglycaemia [Unknown]
  - Drug ineffective [Unknown]
  - Concussion [Unknown]
